FAERS Safety Report 13701070 (Version 1)
Quarter: 2017Q2

REPORT INFORMATION
  Report Type: Spontaneous
  Country: RU (occurrence: RU)
  Receive Date: 20170629
  Receipt Date: 20170629
  Transmission Date: 20170830
  Serious: Yes (Other)
  Sender: FDA-Public Use
  Company Number: RU-ASTRAZENECA-2017SE65797

PATIENT
  Age: 55 Year
  Sex: Female

DRUGS (4)
  1. POLCORTOLON [Concomitant]
     Active Substance: TRIAMCINOLONE
  2. SERETIDE [Concomitant]
     Active Substance: FLUTICASONE PROPIONATE\SALMETEROL XINAFOATE
  3. AMINOPHYLLINE. [Concomitant]
     Active Substance: AMINOPHYLLINE
  4. SYMBICORT [Suspect]
     Active Substance: BUDESONIDE\FORMOTEROL FUMARATE DIHYDRATE
     Indication: ASTHMA
     Dosage: 2 INHALATIONS IN THE MORNING AND 2 INHALATIONS 2 TIMES A DAY
     Route: 055
     Dates: start: 2015

REACTIONS (2)
  - Drug ineffective [Unknown]
  - Lower limb fracture [Recovered/Resolved]

NARRATIVE: CASE EVENT DATE: 201612
